FAERS Safety Report 5672509-4 (Version None)
Quarter: 2008Q1

REPORT INFORMATION
  Report Type: 
  Country: None (occurrence: None)
  Receive Date: 20080318
  Receipt Date: 20080318
  Transmission Date: 20080703
  Serious: No
  Sender: FDA-Public Use
  Company Number: None

PATIENT
  Sex: Male
  Weight: 74.5 kg

DRUGS (4)
  1. FLUOROURACIL [Suspect]
     Dosage: 5152 MG
  2. BEVACIZUMAB (RHUMAB VEGF) [Suspect]
     Dosage: 363 MG
  3. LEUCOVORIN CALCIUM [Suspect]
     Dosage: 736 MG
  4. ELOXATIN [Suspect]
     Dosage: 156 MG

REACTIONS (2)
  - NEUTROPHIL COUNT DECREASED [None]
  - URINARY TRACT INFECTION [None]
